FAERS Safety Report 7650053-2 (Version None)
Quarter: 2011Q3

REPORT INFORMATION
  Report Type: 
  Country: None (occurrence: None)
  Receive Date: 20110802
  Receipt Date: 20110802
  Transmission Date: 20111222
  Serious: Yes (Disabling, Other)
  Sender: FDA-Public Use
  Company Number: None

PATIENT
  Age: 69 Year
  Sex: Female
  Weight: 100.69 kg

DRUGS (3)
  1. NORVASC [Concomitant]
     Route: 048
  2. NORVASC [Concomitant]
     Route: 048
  3. SIMVASTATIN [Suspect]
     Indication: HYPERTRIGLYCERIDAEMIA
     Dosage: 80MG
     Route: 048
     Dates: start: 20110201, end: 20110730

REACTIONS (3)
  - FALL [None]
  - PAIN IN EXTREMITY [None]
  - JOINT INJURY [None]
